FAERS Safety Report 7583175-5 (Version None)
Quarter: 2011Q2

REPORT INFORMATION
  Report Type: 
  Country: None (occurrence: None)
  Receive Date: 20110627
  Receipt Date: 20110627
  Transmission Date: 20111010
  Serious: Yes (Hospitalization)
  Sender: FDA-Public Use
  Company Number: None

PATIENT
  Sex: Female
  Weight: 96.4 kg

DRUGS (4)
  1. CALCIUM CARBONATE [Suspect]
     Dosage: 500 MG
  2. ZOMETA [Suspect]
     Dosage: 4 MG
  3. CO-TENIDONE (DIURETIC PLUS ATENOLOL) [Concomitant]
  4. VITAMIN D2 [Suspect]
     Dosage: 400 IU

REACTIONS (3)
  - CONFUSIONAL STATE [None]
  - FATIGUE [None]
  - SYNCOPE [None]
